FAERS Safety Report 5841260-X (Version None)
Quarter: 2008Q3

REPORT INFORMATION
  Report Type: 
  Country: None (occurrence: None)
  Receive Date: 20080812
  Receipt Date: 20080808
  Transmission Date: 20090109
  Serious: Yes (Other)
  Sender: FDA-Public Use
  Company Number: FR-BRISTOL-MYERS SQUIBB COMPANY-14232078

PATIENT
  Age: 60 Year
  Sex: Male
  Weight: 80 kg

DRUGS (5)
  1. MUCOMYSTENDO [Suspect]
     Route: 055
  2. NETROMYCIN [Suspect]
     Dosage: 1 DOSAGE FORM = 100MG/1ML
     Route: 055
     Dates: start: 20080610
  3. BECLOSPIN [Suspect]
     Route: 055
     Dates: start: 20080610
  4. FEXOFENADINE HCL [Concomitant]
     Dates: start: 20080610
  5. LANSOPRAZOLE [Concomitant]

REACTIONS (3)
  - ANXIETY [None]
  - DYSPNOEA [None]
  - MALAISE [None]
